FAERS Safety Report 21681681 (Version 2)
Quarter: 2022Q4

REPORT INFORMATION
  Report Type: Report from Study
  Country: US (occurrence: US)
  Receive Date: 20221205
  Receipt Date: 20221212
  Transmission Date: 20230113
  Serious: No
  Sender: FDA-Public Use
  Company Number: US-002147023-NVSC2022US278844

PATIENT
  Sex: Female

DRUGS (1)
  1. ENTRESTO [Suspect]
     Active Substance: SACUBITRIL\VALSARTAN
     Indication: Product used for unknown indication
     Dosage: 0.5 MG, BID (24/26 MG 1/2 TAB)
     Route: 048
     Dates: start: 202211

REACTIONS (4)
  - Taste disorder [Unknown]
  - Decreased appetite [Unknown]
  - Productive cough [Unknown]
  - Wrong technique in product usage process [Unknown]
